FAERS Safety Report 25812526 (Version 1)
Quarter: 2025Q3

REPORT INFORMATION
  Report Type: Spontaneous
  Country: AU (occurrence: AU)
  Receive Date: 20250917
  Receipt Date: 20250917
  Transmission Date: 20251020
  Serious: Yes (Other)
  Sender: MERCK SHARP & DOHME LLC
  Company Number: AU-009507513-2323139

PATIENT
  Age: 69 Year
  Sex: Male

DRUGS (2)
  1. PEMBROLIZUMAB [Suspect]
     Active Substance: PEMBROLIZUMAB
     Indication: Transitional cell carcinoma metastatic
     Dates: start: 202411, end: 202508
  2. ENFORTUMAB VEDOTIN [Suspect]
     Active Substance: ENFORTUMAB VEDOTIN
     Indication: Transitional cell carcinoma metastatic
     Dates: start: 202411, end: 202508

REACTIONS (8)
  - Neuropathy peripheral [Unknown]
  - Alopecia [Unknown]
  - Adverse event [Unknown]
  - Thyroid disorder [Unknown]
  - Economic problem [Unknown]
  - Appetite disorder [Unknown]
  - Dry skin [Unknown]
  - Taste disorder [Unknown]
